FAERS Safety Report 8119592-4 (Version None)
Quarter: 2012Q1

REPORT INFORMATION
  Report Type: 
  Country: None (occurrence: None)
  Receive Date: 20120207
  Receipt Date: 20120131
  Transmission Date: 20120608
  Serious: Yes (Other)
  Sender: FDA-Public Use
  Company Number: PHHY2012NO008929

PATIENT
  Age: 55 Year
  Sex: Female

DRUGS (1)
  1. TERBINAFINE HCL [Suspect]
     Dosage: TAKEN FOR 5 WEEKS
     Route: 048
     Dates: start: 20110708, end: 20110814

REACTIONS (10)
  - RASH [None]
  - NAUSEA [None]
  - ABDOMINAL PAIN UPPER [None]
  - AGEUSIA [None]
  - INSOMNIA [None]
  - DYSGEUSIA [None]
  - DIZZINESS [None]
  - GENERAL PHYSICAL HEALTH DETERIORATION [None]
  - PRURITUS GENERALISED [None]
  - HEADACHE [None]
